FAERS Safety Report 4764641-4 (Version None)
Quarter: 2005Q3

REPORT INFORMATION
  Report Type: 
  Country: None (occurrence: None)
  Receive Date: 20050909
  Receipt Date: 20050531
  Transmission Date: 20060218
  Serious: Yes (Hospitalization)
  Sender: FDA-Public Use
  Company Number: 2005JP001084

PATIENT
  Age: 20 Year
  Sex: Male
  Weight: 69 kg

DRUGS (7)
  1. CEFAZOLIN [Suspect]
     Indication: INFECTION PROPHYLAXIS
     Dosage: 1G PER DAY
     Route: 042
     Dates: start: 20050506, end: 20050526
  2. PIPERACILLIN SODIUM [Suspect]
     Indication: EOSINOPHILIC MYOCARDITIS
     Dosage: 1G TWICE PER DAY
     Route: 042
     Dates: start: 20050504, end: 20050506
  3. HYOSCINE HBR HYT [Suspect]
     Indication: EOSINOPHILIC MYOCARDITIS
     Dosage: 20MG PER DAY
     Route: 042
     Dates: start: 20050502, end: 20050502
  4. CEFMETAZOLE SODIUM [Suspect]
     Indication: EOSINOPHILIC MYOCARDITIS
     Dosage: 2G TWICE PER DAY
     Route: 042
     Dates: start: 20050502, end: 20050503
  5. DIPYRONE TAB [Suspect]
     Indication: EOSINOPHILIC MYOCARDITIS
     Dosage: .5G TWICE PER DAY
     Route: 042
     Dates: start: 20050502, end: 20050502
  6. FAMOTIDINE [Concomitant]
     Dosage: 20MG TWICE PER DAY
     Route: 042
     Dates: start: 20050502, end: 20050506
  7. LIDOCAINE [Concomitant]
     Dates: start: 20050506, end: 20050506

REACTIONS (3)
  - CONDITION AGGRAVATED [None]
  - DRUG HYPERSENSITIVITY [None]
  - EOSINOPHILIC MYOCARDITIS [None]
